FAERS Safety Report 14558580 (Version 1)
Quarter: 2018Q1

REPORT INFORMATION
  Report Type: Spontaneous
  Country: US (occurrence: US)
  Receive Date: 20180221
  Receipt Date: 20180221
  Transmission Date: 20180509
  Serious: No
  Sender: FDA-Public Use
  Company Number: US-TEVA-2018-US-861922

PATIENT
  Age: 61 Year
  Sex: Male

DRUGS (4)
  1. CAPECITABINE. [Suspect]
     Active Substance: CAPECITABINE
     Indication: GASTROOESOPHAGEAL CANCER
     Route: 065
  2. CISPLATIN. [Concomitant]
     Active Substance: CISPLATIN
     Indication: GASTROOESOPHAGEAL CANCER
  3. DOCETAXEL. [Concomitant]
     Active Substance: DOCETAXEL
     Indication: GASTROOESOPHAGEAL CANCER
  4. HERCEPTIN [Concomitant]
     Active Substance: TRASTUZUMAB
     Indication: GASTROOESOPHAGEAL CANCER

REACTIONS (2)
  - Fatigue [Unknown]
  - Palmar-plantar erythrodysaesthesia syndrome [Unknown]
